FAERS Safety Report 19062851 (Version 1)
Quarter: 2021Q1

REPORT INFORMATION
  Report Type: Spontaneous
  Country: CA (occurrence: CA)
  Receive Date: 20210326
  Receipt Date: 20210326
  Transmission Date: 20210420
  Serious: Yes (Hospitalization, Other)
  Sender: FDA-Public Use
  Company Number: CA-PFIZER INC-2021289747

PATIENT
  Age: 60 Year
  Sex: Female
  Weight: 65 kg

DRUGS (3)
  1. XELJANZ [Suspect]
     Active Substance: TOFACITINIB CITRATE
     Dosage: 5 MG, 2 EVERY 1 YEARS
     Route: 048
  2. MEZAVANT [Concomitant]
     Active Substance: MESALAMINE
  3. PREMARIN [Concomitant]
     Active Substance: ESTROGENS, CONJUGATED

REACTIONS (3)
  - Status epilepticus [Recovered/Resolved with Sequelae]
  - Off label use [Unknown]
  - Brain abscess [Recovered/Resolved with Sequelae]
